FAERS Safety Report 17771784 (Version 2)
Quarter: 2020Q2

REPORT INFORMATION
  Report Type: Spontaneous
  Country: US (occurrence: US)
  Receive Date: 20200512
  Receipt Date: 20200611
  Transmission Date: 20200714
  Serious: No
  Sender: FDA-Public Use
  Company Number: US-PFIZER INC-2020189224

PATIENT
  Age: 60 Year
  Sex: Female

DRUGS (2)
  1. XELJANZ [Suspect]
     Active Substance: TOFACITINIB CITRATE
     Indication: RHEUMATOID ARTHRITIS
     Dosage: 5 MG, 2X/DAY
     Route: 048
     Dates: start: 202004
  2. PREDNISONE. [Suspect]
     Active Substance: PREDNISONE
     Dosage: 5 MG, UNK

REACTIONS (6)
  - Dysuria [Unknown]
  - Therapeutic product effect incomplete [Unknown]
  - Nervousness [Recovering/Resolving]
  - Headache [Unknown]
  - Dysstasia [Unknown]
  - Inappropriate schedule of product administration [Unknown]
